FAERS Safety Report 6683573-8 (Version None)
Quarter: 2010Q2

REPORT INFORMATION
  Report Type: 
  Country: None (occurrence: None)
  Receive Date: 20100413
  Receipt Date: 20100330
  Transmission Date: 20101027
  Serious: Yes (Life-Threatening, Other)
  Sender: FDA-Public Use
  Company Number: 2010SCPR000488

PATIENT
  Age: 78 Year
  Sex: Male

DRUGS (12)
  1. CAPTOPRIL [Suspect]
     Indication: ACUTE MYOCARDIAL INFARCTION
     Dosage: 12.5 MG, ORAL
     Route: 048
     Dates: start: 20091127, end: 20091204
  2. RANITIDINE HCL [Suspect]
     Indication: PROPHYLAXIS AGAINST GASTROINTESTINAL ULCER
     Dosage: 300 MG, ORAL
     Route: 048
     Dates: start: 20091227, end: 20100112
  3. METFORMIN HCL [Suspect]
     Indication: DIABETES MELLITUS
     Dosage: 2.550 MG,ORAL
     Route: 048
     Dates: end: 20100113
  4. EMCONCOR COR (BISOPROLOL FUMARATE) UNKNOWN, 2.5MG [Suspect]
     Indication: ACUTE MYOCARDIAL INFARCTION
     Dosage: 2.5 MG, ORAL
     Route: 048
     Dates: start: 20091210, end: 20100113
  5. ADIRO (ACETYLSALICYLIC ACID) UNKNOWN, 100MG [Suspect]
     Indication: ACUTE MYOCARDIAL INFARCTION
     Dosage: 100 MG, QD, ORAL
     Route: 048
     Dates: start: 20091126
  6. COZAAR [Suspect]
     Indication: ACUTE MYOCARDIAL INFARCTION
     Dosage: 50 MG, QD, ORAL
     Route: 048
     Dates: start: 20091210, end: 20100112
  7. EZETROL (EZETIMIBE) UNKNOWN, 10MG [Suspect]
     Indication: ACUTE MYOCARDIAL INFARCTION
     Dosage: 20 MG, QD, ORAL
     Route: 048
     Dates: start: 20091216, end: 20100112
  8. PLAVIX [Suspect]
     Indication: ACUTE MYOCARDIAL INFARCTION
     Dosage: 75 MG, QD, ORAL
     Route: 048
     Dates: start: 20091126, end: 20100112
  9. RONAME (GLIMEPIRIDE) UNKNOWN, 2MG [Suspect]
     Indication: ACUTE MYOCARDIAL INFARCTION
     Dosage: 1 MG, ORAL
     Route: 048
     Dates: end: 20091204
  10. GLIMEPIRIDE STADA (GLIMEPIRIDE) UNKNOWN, 1MG [Suspect]
     Indication: DIABETES MELLITUS
     Dosage: 1 MG, ORAL
     Route: 048
     Dates: start: 20091110, end: 20100112
  11. ZARATOR (ATORVASTATIN) UNKNOWN, 80MG [Suspect]
     Indication: ACUTE MYOCARDIAL INFARCTION
     Dosage: 80 MG, ORAL
     Route: 048
     Dates: start: 20091127, end: 20091204
  12. CETIRIZINE HCL [Suspect]
     Indication: URTICARIA
     Dosage: 20 MG, QD, ORAL
     Route: 048
     Dates: start: 20091204, end: 20091207

REACTIONS (2)
  - DRUG INTERACTION [None]
  - NEUTROPENIA [None]
